FAERS Safety Report 13320500 (Version 2)
Quarter: 2017Q2

REPORT INFORMATION
  Report Type: Spontaneous
  Country: MT (occurrence: MT)
  Receive Date: 20170310
  Receipt Date: 20170411
  Transmission Date: 20170830
  Serious: Yes (Other)
  Sender: FDA-Public Use
  Company Number: MT-GLAXOSMITHKLINE-MT2017GSK030371

PATIENT
  Age: 30 Year
  Sex: Female

DRUGS (1)
  1. RELVAR ELLIPTA [Suspect]
     Active Substance: FLUTICASONE FUROATE\VILANTEROL TRIFENATATE
     Indication: ASTHMA
     Dosage: 184 UNK, QD
     Route: 055
     Dates: start: 201609, end: 20170302

REACTIONS (8)
  - Dyspnoea [Unknown]
  - Asthma [Unknown]
  - Productive cough [Unknown]
  - Bronchitis [Recovered/Resolved]
  - Wheezing [Unknown]
  - Pneumonia [Recovering/Resolving]
  - Cough [Unknown]
  - Lower respiratory tract infection [Recovering/Resolving]

NARRATIVE: CASE EVENT DATE: 20161212
